FAERS Safety Report 8729545 (Version 3)
Quarter: 2017Q3

REPORT INFORMATION
  Report Type: Spontaneous
  Country: US (occurrence: US)
  Receive Date: 20120817
  Receipt Date: 20170929
  Transmission Date: 20171128
  Serious: Yes (Hospitalization, Other)
  Sender: FDA-Public Use
  Company Number: US-ROCHE-1101775

PATIENT
  Age: 56 Year
  Sex: Female

DRUGS (4)
  1. FOSAMAX [Suspect]
     Active Substance: ALENDRONATE SODIUM
     Route: 048
     Dates: start: 2004, end: 2009
  2. FOSAMAX [Suspect]
     Active Substance: ALENDRONATE SODIUM
     Indication: OSTEOPOROSIS
     Route: 048
     Dates: start: 200701, end: 200905
  3. BONIVA [Suspect]
     Active Substance: IBANDRONATE SODIUM
     Route: 048
     Dates: start: 200905, end: 201102
  4. BONIVA [Suspect]
     Active Substance: IBANDRONATE SODIUM
     Indication: OSTEOPOROSIS
     Route: 048
     Dates: start: 2006, end: 200701

REACTIONS (8)
  - Femur fracture [Unknown]
  - Depression [Unknown]
  - Anxiety [Unknown]
  - Low turnover osteopathy [Unknown]
  - Emotional distress [Unknown]
  - Hip fracture [Unknown]
  - Spinal fracture [Unknown]
  - Hand fracture [Unknown]

NARRATIVE: CASE EVENT DATE: 200711
